FAERS Safety Report 18364913 (Version 1)
Quarter: 2020Q4

REPORT INFORMATION
  Report Type: Spontaneous
  Country: DE (occurrence: DE)
  Receive Date: 20201009
  Receipt Date: 20201009
  Transmission Date: 20210114
  Serious: Yes (Hospitalization, Other)
  Sender: FDA-Public Use
  Company Number: DE-DRREDDYS-GER/GER/20/0127655

PATIENT
  Age: 15 Year
  Sex: Female
  Weight: 67 kg

DRUGS (2)
  1. CEFUROXIM TBL [Suspect]
     Active Substance: CEFUROXIME
     Indication: SUICIDAL IDEATION
     Dosage: DAILY DOSE: 4 DF DOSAGE FORM EVERY DAYS
     Route: 048
     Dates: start: 20190625, end: 20190625
  2. IBUPROFEN. [Suspect]
     Active Substance: IBUPROFEN
     Indication: SUICIDAL IDEATION
     Dosage: DAILY DOSE: 5200 MG MILLGRAM(S) EVERY DAYS 13 SEPARATED DOSES
     Route: 048
     Dates: start: 20190625, end: 20190625

REACTIONS (2)
  - Toxicity to various agents [Unknown]
  - Intentional overdose [Unknown]

NARRATIVE: CASE EVENT DATE: 20190625
